FAERS Safety Report 8872840 (Version 1)
Quarter: 2012Q4

REPORT INFORMATION
  Report Type: Report from Study
  Country: CA (occurrence: CA)
  Receive Date: 20121030
  Receipt Date: 20121030
  Transmission Date: 20130627
  Serious: Yes (Other)
  Sender: FDA-Public Use
  Company Number: CA-ROCHE-1149800

PATIENT
  Age: 68 Year
  Sex: Male

DRUGS (4)
  1. RITUXIMAB [Suspect]
     Indication: B-CELL LYMPHOMA
     Route: 065
     Dates: start: 201109, end: 201112
  2. CYCLOPHOSPHAMIDE [Suspect]
     Indication: B-CELL LYMPHOMA
     Route: 065
     Dates: start: 201109, end: 201112
  3. VINCRISTINE [Suspect]
     Indication: B-CELL LYMPHOMA
     Route: 065
     Dates: start: 201109, end: 201112
  4. PREDNISONE [Suspect]
     Indication: B-CELL LYMPHOMA
     Route: 065
     Dates: start: 201109, end: 201112

REACTIONS (1)
  - Toxicity to various agents [Unknown]
